FAERS Safety Report 7324296-1 (Version None)
Quarter: 2011Q1

REPORT INFORMATION
  Report Type: 
  Country: None (occurrence: None)
  Receive Date: 20110301
  Receipt Date: 20110223
  Transmission Date: 20110831
  Serious: Yes (Hospitalization)
  Sender: FDA-Public Use
  Company Number: NL-MEDIMMUNE-MEDI-0012673

PATIENT
  Sex: Female
  Weight: 5.03 kg

DRUGS (1)
  1. SYNAGIS [Suspect]
     Route: 030
     Dates: start: 20101025, end: 20110117

REACTIONS (3)
  - HYPOVENTILATION [None]
  - DYSPNOEA [None]
  - RESPIRATORY SYNCYTIAL VIRUS INFECTION [None]
